FAERS Safety Report 17678579 (Version 1)
Quarter: 2020Q2

REPORT INFORMATION
  Report Type: Spontaneous
  Country: US (occurrence: US)
  Receive Date: 20200417
  Receipt Date: 20200417
  Transmission Date: 20200714
  Serious: No
  Sender: FDA-Public Use
  Company Number: US-AMGEN-USASP2020061204

PATIENT
  Age: 59 Year
  Sex: Female
  Weight: 83.45 kg

DRUGS (1)
  1. NEULASTA [Suspect]
     Active Substance: PEGFILGRASTIM
     Indication: NEUTROPENIA
     Dosage: UNK
     Route: 065

REACTIONS (3)
  - Device use error [Unknown]
  - Incorrect disposal of product [Unknown]
  - Fear of injection [Unknown]

NARRATIVE: CASE EVENT DATE: 20200410
